FAERS Safety Report 24038668 (Version 3)
Quarter: 2025Q3

REPORT INFORMATION
  Report Type: Spontaneous
  Country: US (occurrence: US)
  Receive Date: 20240702
  Receipt Date: 20250816
  Transmission Date: 20251021
  Serious: No
  Sender: ALEXION PHARMACEUTICALS
  Company Number: 2024A134881

PATIENT

DRUGS (1)
  1. BYDUREON BCISE [Suspect]
     Active Substance: EXENATIDE

REACTIONS (5)
  - Product administration interrupted [Unknown]
  - Injection site mass [Unknown]
  - Incorrect dose administered [Unknown]
  - Wrong technique in device usage process [Unknown]
  - Device delivery system issue [Unknown]

NARRATIVE: CASE EVENT DATE: 20240610
